FAERS Safety Report 5078692-6 (Version None)
Quarter: 2006Q3

REPORT INFORMATION
  Report Type: 
  Country: None (occurrence: None)
  Receive Date: 20060720
  Receipt Date: 20060616
  Transmission Date: 20061208
  Serious: Yes (Other)
  Sender: FDA-Public Use
  Company Number: HQWYE297320JUN06

PATIENT
  Age: 81 Year
  Sex: Female
  Weight: 65.83 kg

DRUGS (5)
  1. ADVIL PM [Suspect]
     Indication: ARTHRITIS
     Dosage: ONE CAPLET ONE TIME, ORAL
     Route: 048
     Dates: start: 20060609, end: 20060609
  2. PROSOM [Concomitant]
  3. PROCARDIA [Concomitant]
  4. LEVOXYL [Concomitant]
  5. PROTONIX [Concomitant]

REACTIONS (2)
  - GLOSSODYNIA [None]
  - SWOLLEN TONGUE [None]
